FAERS Safety Report 16133887 (Version 1)
Quarter: 2019Q1

REPORT INFORMATION
  Report Type: Spontaneous
  Country: FR (occurrence: FR)
  Receive Date: 20190329
  Receipt Date: 20190329
  Transmission Date: 20190418
  Serious: Yes (Hospitalization)
  Sender: FDA-Public Use
  Company Number: FR-ROCHE-2292193

PATIENT
  Age: 9 Year
  Sex: Male

DRUGS (7)
  1. INFANRIX [Suspect]
     Active Substance: DIPHTHERIA AND TETANUS TOXOIDS AND ACELLULAR PERTUSSIS VACCINE ADSORBED PF
     Indication: IMMUNISATION
     Dosage: MOST RECENT DOSE: 27/FEB/2019
     Route: 058
     Dates: start: 20190227
  2. AUGMENTIN [Suspect]
     Active Substance: AMOXICILLIN\CLAVULANATE POTASSIUM
     Indication: LUNG DISORDER
     Dosage: MOST RECENT DOSE: 26/FEB/2019
     Route: 048
     Dates: start: 20190218
  3. RIVOTRIL [Suspect]
     Active Substance: CLONAZEPAM
     Indication: EPILEPSY
     Route: 048
     Dates: start: 20190225
  4. CIFLOX (FRANCE) [Suspect]
     Active Substance: CIPROFLOXACIN
     Indication: LUNG DISORDER
     Dosage: MOST RECENT DOSE: 28/FEB/2019
     Route: 048
     Dates: start: 20190224
  5. PREVNAR 13 [Suspect]
     Active Substance: PNEUMOCOCCAL 13-VALENT CONJUGATE VACCINE
     Indication: IMMUNISATION
     Dosage: MOST RECENT DOSE: 27/FEB/2019
     Route: 058
     Dates: start: 20190227
  6. BEXSERO [Suspect]
     Active Substance: MENINGOCOCCAL GROUP B VACCINE
     Indication: IMMUNISATION
     Dosage: MOST RECENT DOSE: 27/FEB/2019
     Route: 058
     Dates: start: 20190227
  7. ORACILLINE [Suspect]
     Active Substance: PENICILLIN V
     Indication: PROPHYLAXIS
     Route: 048
     Dates: start: 20190227

REACTIONS (1)
  - Depressed level of consciousness [Recovered/Resolved]

NARRATIVE: CASE EVENT DATE: 20190227
